FAERS Safety Report 8467475-2 (Version None)
Quarter: 2012Q2

REPORT INFORMATION
  Report Type: 
  Country: None (occurrence: None)
  Receive Date: 20120620
  Receipt Date: 20120612
  Transmission Date: 20120825
  Serious: Yes (Other)
  Sender: FDA-Public Use
  Company Number: AUR-APL-2012-02455

PATIENT
  Age: 64 Year
  Sex: Female
  Weight: 64.4108 kg

DRUGS (8)
  1. LORAZEPAM [Concomitant]
  2. OMEPRAZOLE [Concomitant]
  3. BUPROPION SR (BUPROPION) [Concomitant]
  4. LYRICA [Concomitant]
  5. BUPROPION HCL [Concomitant]
  6. TRAZODONE HCL [Concomitant]
  7. GABAPENTIN [Suspect]
     Indication: PAIN IN EXTREMITY
     Dosage: 600 MG (300 MG,2 IN 1 D),ORAL, 200 MG (100 MG, 2 IN 1 D), 300 MG (100 MG,3 IN 1 D)
     Dates: start: 20120101
  8. GABAPENTIN [Suspect]
     Indication: PAIN IN EXTREMITY
     Dosage: 600 MG (300 MG,2 IN 1 D),ORAL, 200 MG (100 MG, 2 IN 1 D), 300 MG (100 MG,3 IN 1 D)
     Dates: start: 20120201, end: 20120401

REACTIONS (1)
  - GASTRITIS [None]
